FAERS Safety Report 7494218-1 (Version None)
Quarter: 2011Q2

REPORT INFORMATION
  Report Type: 
  Country: None (occurrence: None)
  Receive Date: 20110520
  Receipt Date: 20101230
  Transmission Date: 20111010
  Serious: Yes (Other)
  Sender: FDA-Public Use
  Company Number: US-BAYER-201016027NA

PATIENT
  Age: 26 Year
  Sex: Female
  Weight: 76.19 kg

DRUGS (12)
  1. APRI [Concomitant]
     Dosage: PREVIOUS OC USE
     Dates: start: 20020204, end: 20050320
  2. YAZ [Suspect]
     Indication: CONTRACEPTION
     Dosage: 1 DF, QD
     Route: 048
     Dates: start: 20070701, end: 20090101
  3. YASMIN [Suspect]
     Indication: ACNE
  4. VALTREX [Concomitant]
     Indication: HERPES SIMPLEX
     Dosage: 1 MG, UNK
     Route: 048
     Dates: start: 20021123
  5. IBUPROFEN [Concomitant]
  6. DESOGEN [Concomitant]
     Dosage: PREVIOUS OC USE
     Dates: start: 20010106, end: 20020106
  7. CARAFATE [Concomitant]
     Dosage: UNK
     Dates: start: 20020131
  8. PREVACID [Concomitant]
     Dosage: UNK
     Dates: start: 20020131
  9. PROTONIX [Concomitant]
  10. ALUMINUM HYDROXIDE TAB [Concomitant]
  11. YAZ [Suspect]
     Indication: ACNE
  12. YASMIN [Suspect]
     Indication: CONTRACEPTION
     Dosage: 1 DF, QD
     Dates: start: 20010101, end: 20060101

REACTIONS (4)
  - CHOLECYSTITIS CHRONIC [None]
  - CHOLECYSTECTOMY [None]
  - CHOLELITHIASIS [None]
  - CARDIOVASCULAR DISORDER [None]
